FAERS Safety Report 6394269-4 (Version None)
Quarter: 2009Q4

REPORT INFORMATION
  Report Type: 
  Country: None (occurrence: None)
  Receive Date: 20091008
  Receipt Date: 20090928
  Transmission Date: 20100525
  Serious: Yes (Hospitalization)
  Sender: FDA-Public Use
  Company Number: US-ELI_LILLY_AND_COMPANY-US200909006582

PATIENT
  Sex: Female

DRUGS (2)
  1. PROZAC [Suspect]
     Indication: EATING DISORDER
     Dosage: 20 MG, DAILY (1/D)
     Route: 065
     Dates: start: 20090801, end: 20090801
  2. PROZAC [Suspect]
     Dosage: 20 MG, DAILY (1/D)
     Route: 065
     Dates: start: 20090801, end: 20090910

REACTIONS (9)
  - ABNORMAL DREAMS [None]
  - COLD SWEAT [None]
  - COMMUNICATION DISORDER [None]
  - DIZZINESS [None]
  - FEELING ABNORMAL [None]
  - GAIT DISTURBANCE [None]
  - HEADACHE [None]
  - NAUSEA [None]
  - WITHDRAWAL SYNDROME [None]
